FAERS Safety Report 13444997 (Version 3)
Quarter: 2017Q3

REPORT INFORMATION
  Report Type: Report from Study
  Country: US (occurrence: US)
  Receive Date: 20170414
  Receipt Date: 20170717
  Transmission Date: 20171127
  Serious: Yes (Hospitalization)
  Sender: FDA-Public Use
  Company Number: US-SAOL THERAPEUTICS-2017SAO00694

PATIENT
  Age: 61 Year
  Sex: Female

DRUGS (4)
  1. COMPOUNDED BACLOFEN [Suspect]
     Active Substance: BACLOFEN
     Dosage: 848 ?G, \DAY
     Route: 037
     Dates: start: 20160223
  2. SUFENTA [Suspect]
     Active Substance: SUFENTANIL CITRATE
     Dosage: 179.82 ?G, \DAY
     Route: 037
     Dates: start: 20160223
  3. CLONIDINE. [Suspect]
     Active Substance: CLONIDINE
     Dosage: 399.26 ?G, \DAY
     Route: 037
     Dates: start: 20160223
  4. BUPIVICAINE [Suspect]
     Active Substance: BUPIVACAINE
     Dosage: 8.027 MG, \DAY
     Route: 037
     Dates: start: 20160223

REACTIONS (4)
  - Arachnoid cyst [Recovered/Resolved]
  - Syringomyelia [Recovered/Resolved]
  - Device failure [Recovered/Resolved]
  - Device adhesion issue [Unknown]

NARRATIVE: CASE EVENT DATE: 20160404
